FAERS Safety Report 24702797 (Version 1)
Quarter: 2024Q4

REPORT INFORMATION
  Report Type: Other
  Country: FR (occurrence: FR)
  Receive Date: 20241205
  Receipt Date: 20241205
  Transmission Date: 20250115
  Serious: Yes (Death)
  Sender: Atnahs Healthcare
  Company Number: None

PATIENT
  Age: 33 Year
  Sex: Male

DRUGS (5)
  1. DIAZEPAM [Suspect]
     Active Substance: DIAZEPAM
     Indication: Product used for unknown indication
     Dosage: INCONNUE
     Route: 065
     Dates: end: 202104
  2. TRAMADOL [Suspect]
     Active Substance: TRAMADOL
     Indication: Product used for unknown indication
     Dosage: INCONNUE
     Route: 065
     Dates: end: 202104
  3. LOXAPINE [Suspect]
     Active Substance: LOXAPINE
     Indication: Product used for unknown indication
     Dosage: INCONNUE
     Route: 065
     Dates: end: 202104
  4. TRIMEPRAZINE [Suspect]
     Active Substance: TRIMEPRAZINE
     Indication: Product used for unknown indication
     Dosage: INCONNUE
     Route: 065
     Dates: end: 202104
  5. ALPRAZOLAM [Suspect]
     Active Substance: ALPRAZOLAM
     Indication: Product used for unknown indication
     Dosage: INCONNUE
     Route: 065
     Dates: end: 202104

REACTIONS (1)
  - Poisoning [Fatal]

NARRATIVE: CASE EVENT DATE: 20210401
